FAERS Safety Report 23142470 (Version 2)
Quarter: 2023Q4

REPORT INFORMATION
  Report Type: Spontaneous
  Country: CZ (occurrence: CZ)
  Receive Date: 20231103
  Receipt Date: 20231120
  Transmission Date: 20240110
  Serious: Yes (Other)
  Sender: FDA-Public Use
  Company Number: CZ-NOVOPROD-1105253

PATIENT
  Age: 45 Year
  Sex: Female

DRUGS (2)
  1. INSULIN ASPART [Suspect]
     Active Substance: INSULIN ASPART
     Indication: Type 1 diabetes mellitus
     Dosage: 36 IU, QD
  2. TRESIBA [Suspect]
     Active Substance: INSULIN DEGLUDEC
     Indication: Type 1 diabetes mellitus
     Dosage: 12 IU, QD

REACTIONS (6)
  - Abdominal mass [Unknown]
  - Mass [Unknown]
  - Skin discolouration [Unknown]
  - Pain [Unknown]
  - Cutaneous amyloidosis [Unknown]
  - Lipodystrophy acquired [Unknown]
